FAERS Safety Report 11413934 (Version 7)
Quarter: 2015Q4

REPORT INFORMATION
  Report Type: Spontaneous
  Country: US (occurrence: US)
  Receive Date: 20150824
  Receipt Date: 20151008
  Transmission Date: 20160304
  Serious: Yes (Hospitalization, Congenital Anomaly, Other)
  Sender: FDA-Public Use
  Company Number: US-GLAXOSMITHKLINE-US2015GSK120575

PATIENT
  Age: 0 Year
  Sex: Female
  Weight: .68 kg

DRUGS (15)
  1. ZOFRAN [Suspect]
     Active Substance: ONDANSETRON HYDROCHLORIDE
     Indication: NAUSEA
     Dosage: UNK, PRN
     Route: 064
     Dates: start: 20140519, end: 201408
  2. TORADOL [Concomitant]
     Active Substance: KETOROLAC TROMETHAMINE
     Route: 064
  3. FIORICET [Concomitant]
     Active Substance: ACETAMINOPHEN\BUTALBITAL\CAFFEINE
     Route: 064
  4. ZOFRAN [Suspect]
     Active Substance: ONDANSETRON HYDROCHLORIDE
     Indication: VOMITING IN PREGNANCY
     Dosage: UNK
     Route: 064
  5. MAGNESIUM [Concomitant]
     Active Substance: MAGNESIUM
  6. APRESOLINE HYDROCHLORIDE [Concomitant]
     Active Substance: HYDRALAZINE HYDROCHLORIDE
     Route: 064
  7. BETAMETHASONE. [Concomitant]
     Active Substance: BETAMETHASONE
     Route: 064
  8. ZOFRAN [Suspect]
     Active Substance: ONDANSETRON HYDROCHLORIDE
     Indication: PAIN
  9. ONDANSETRON HYDROCHLORIDE. [Suspect]
     Active Substance: ONDANSETRON HYDROCHLORIDE
     Indication: PRODUCT USED FOR UNKNOWN INDICATION
     Route: 064
  10. LABETALOL [Concomitant]
     Active Substance: LABETALOL\LABETALOL HYDROCHLORIDE
     Route: 064
  11. IRON [Concomitant]
     Active Substance: IRON
  12. BICITRA [Concomitant]
     Active Substance: CITRIC ACID, 1-STEARYL ESTER\SODIUM CITRATE
     Route: 064
  13. ZENPEP [Concomitant]
     Active Substance: PANCRELIPASE\PANCRELIPASE AMYLASE\PANCRELIPASE LIPASE\PANCRELIPASE PROTEASE
  14. AMBIEN [Concomitant]
     Active Substance: ZOLPIDEM TARTRATE
     Route: 064
  15. ZARBEE^S NATURALS BABY COUGH SYRUP [Concomitant]
     Active Substance: HERBALS

REACTIONS (62)
  - Neonatal hypoxia [Unknown]
  - Patent ductus arteriosus [Recovered/Resolved]
  - Thrombocytopenia [Recovered/Resolved]
  - Increased upper airway secretion [Unknown]
  - Traumatic liver injury [Unknown]
  - Intestinal ischaemia [Unknown]
  - Purpura [Unknown]
  - Wound [Unknown]
  - Respiratory syncytial virus bronchiolitis [Unknown]
  - Cough [Unknown]
  - Meconium plug syndrome [Recovered/Resolved]
  - Pancreatic insufficiency [Unknown]
  - Hypotension [Recovered/Resolved]
  - Hypothermia [Unknown]
  - Cardiac murmur [Unknown]
  - Rash papular [Unknown]
  - Nasal congestion [Unknown]
  - Inability to crawl [Unknown]
  - Surgery [Unknown]
  - Anaemia [Unknown]
  - Jaundice cholestatic [Recovered/Resolved]
  - Hyponatraemia [Recovered/Resolved]
  - Peritonitis [Recovered/Resolved]
  - Hepatic enzyme increased [Unknown]
  - Nasal flaring [Unknown]
  - Placental insufficiency [Unknown]
  - Foetal growth restriction [Unknown]
  - Disability [Unknown]
  - Hypoglycaemia [Recovered/Resolved]
  - Respiratory distress [Recovered/Resolved]
  - Metabolic acidosis [Recovered/Resolved]
  - Cardiomegaly [Unknown]
  - Blood bilirubin increased [Recovered/Resolved]
  - Rash [Unknown]
  - Congenital anomaly [Unknown]
  - Premature baby [Recovered/Resolved with Sequelae]
  - Foetal exposure during pregnancy [Unknown]
  - Neutropenia [Recovered/Resolved]
  - Sepsis [Recovered/Resolved]
  - Ileostomy [Recovered/Resolved]
  - Diarrhoea [Recovering/Resolving]
  - Rash erythematous [Unknown]
  - Dermatitis diaper [Unknown]
  - Wheezing [Unknown]
  - Peritonitis [Unknown]
  - Pharyngitis [Unknown]
  - Brain natriuretic peptide increased [Recovered/Resolved]
  - Rales [Unknown]
  - Motor developmental delay [Unknown]
  - Underweight [Unknown]
  - Renal tubular necrosis [Recovered/Resolved]
  - Ileus [Recovered/Resolved]
  - Upper respiratory tract infection [Unknown]
  - Small intestinal obstruction [Unknown]
  - Peritonitis [Unknown]
  - Adverse drug reaction [Unknown]
  - Hospitalisation [Unknown]
  - Emotional distress [Unknown]
  - Respiratory failure [Recovered/Resolved]
  - Anuria [Recovered/Resolved]
  - Productive cough [Unknown]
  - Use of accessory respiratory muscles [Unknown]

NARRATIVE: CASE EVENT DATE: 2014
